FAERS Safety Report 19049065 (Version 1)
Quarter: 2021Q1

REPORT INFORMATION
  Report Type: Spontaneous
  Country: US (occurrence: US)
  Receive Date: 20210323
  Receipt Date: 20210323
  Transmission Date: 20210420
  Serious: No
  Sender: FDA-Public Use
  Company Number: US-GALDERMA-US2021000344

PATIENT
  Age: 17 Year
  Sex: Male

DRUGS (6)
  1. PROACTIV REPAIRING TREATMENT [Concomitant]
     Active Substance: BENZOYL PEROXIDE
     Indication: ACNE
     Route: 061
     Dates: start: 202010, end: 20201228
  2. PROACTIV MD ULTRA GENTLE CLEANSER [Concomitant]
     Indication: ACNE
     Route: 061
     Dates: start: 202010, end: 20201228
  3. PROACTIV RENEWING CLEANSER [Concomitant]
     Active Substance: BENZOYL PEROXIDE
     Indication: ACNE
     Route: 061
     Dates: start: 202010, end: 20201228
  4. PROACTIV MD ADAPALENE ACNE TREATMENT [Suspect]
     Active Substance: ADAPALENE
     Indication: ACNE
     Dosage: 0.1%
     Route: 061
     Dates: start: 202010, end: 20201228
  5. PROACTIV MD DAILY OIL CONTROL SPF 30 [Suspect]
     Active Substance: AVOBENZONE\OCTISALATE\OCTOCRYLENE
     Indication: ACNE
     Route: 061
     Dates: start: 202010, end: 20201228
  6. PROACTIV REVITALIZING TONER [Concomitant]
     Active Substance: COSMETICS
     Indication: ACNE
     Route: 061
     Dates: start: 202010, end: 20201228

REACTIONS (5)
  - Drug ineffective [Unknown]
  - Acne [Not Recovered/Not Resolved]
  - Inappropriate schedule of product administration [Recovered/Resolved]
  - Overdose [Recovered/Resolved]
  - Rash [Not Recovered/Not Resolved]

NARRATIVE: CASE EVENT DATE: 202010
